FAERS Safety Report 7227643-4 (Version None)
Quarter: 2011Q1

REPORT INFORMATION
  Report Type: 
  Country: None (occurrence: None)
  Receive Date: 20110114
  Receipt Date: 20110112
  Transmission Date: 20110831
  Serious: No
  Sender: FDA-Public Use
  Company Number: US-PFIZER INC-2011008293

PATIENT
  Sex: Female
  Weight: 90.703 kg

DRUGS (2)
  1. PIROXICAM [Concomitant]
     Indication: ARTHRITIS
     Dosage: 10 MG, UNK
  2. NICOTROL [Suspect]
     Indication: SMOKING CESSATION THERAPY
     Dosage: UNK
     Route: 055
     Dates: start: 20110101

REACTIONS (1)
  - DRUG INEFFECTIVE [None]
